FAERS Safety Report 14470343 (Version 1)
Quarter: 2018Q1

REPORT INFORMATION
  Report Type: Spontaneous
  Country: US (occurrence: US)
  Receive Date: 20180131
  Receipt Date: 20180131
  Transmission Date: 20180509
  Serious: Yes (Other)
  Sender: FDA-Public Use
  Company Number: US-IMPAX LABORATORIES, INC-2018-IPXL-00232

PATIENT
  Age: 58 Year
  Sex: Female

DRUGS (16)
  1. URSODIOL. [Suspect]
     Active Substance: URSODIOL
     Indication: PRODUCT USE IN UNAPPROVED INDICATION
  2. CHOLESTYRAMINE. [Suspect]
     Active Substance: CHOLESTYRAMINE
     Indication: CHOLANGITIS SCLEROSING
     Dosage: UNK
     Route: 065
  3. HYDROXYZINE PAMOATE IR [Suspect]
     Active Substance: HYDROXYZINE PAMOATE
     Indication: PRODUCT USE IN UNAPPROVED INDICATION
  4. SERTRALINE [Suspect]
     Active Substance: SERTRALINE HYDROCHLORIDE
     Indication: PRURITUS
  5. URSODIOL. [Suspect]
     Active Substance: URSODIOL
     Indication: PRURITUS
  6. HYDROXYZINE PAMOATE IR [Suspect]
     Active Substance: HYDROXYZINE PAMOATE
     Indication: CHOLANGITIS SCLEROSING
     Dosage: UNK
     Route: 065
  7. HYDROXYZINE PAMOATE IR [Suspect]
     Active Substance: HYDROXYZINE PAMOATE
     Indication: PRURITUS
  8. CHOLESTYRAMINE. [Suspect]
     Active Substance: CHOLESTYRAMINE
     Indication: PRURITUS
     Dosage: 4 G, 2 /DAY
     Route: 065
  9. NALTREXONE [Suspect]
     Active Substance: NALTREXONE
     Indication: PRURITUS
  10. DOXEPIN [Suspect]
     Active Substance: DOXEPIN
     Indication: CHOLANGITIS SCLEROSING
     Dosage: UNK
     Route: 065
  11. SERTRALINE [Suspect]
     Active Substance: SERTRALINE HYDROCHLORIDE
     Indication: CHOLANGITIS SCLEROSING
     Dosage: UNK
     Route: 065
  12. URSODIOL. [Suspect]
     Active Substance: URSODIOL
     Indication: CHOLANGITIS SCLEROSING
     Dosage: UNK
     Route: 065
  13. NALTREXONE [Suspect]
     Active Substance: NALTREXONE
     Indication: CHOLANGITIS SCLEROSING
     Dosage: UNK
     Route: 065
  14. DOXEPIN [Suspect]
     Active Substance: DOXEPIN
     Indication: PRURITUS
  15. RIFAMPIN. [Suspect]
     Active Substance: RIFAMPIN
     Indication: CHOLANGITIS SCLEROSING
     Dosage: UNK
     Route: 065
  16. RIFAMPIN. [Suspect]
     Active Substance: RIFAMPIN
     Indication: PRURITUS

REACTIONS (2)
  - Drug ineffective for unapproved indication [Unknown]
  - Cholangitis sclerosing [Recovering/Resolving]
